FAERS Safety Report 6195379-7 (Version None)
Quarter: 2009Q2

REPORT INFORMATION
  Report Type: 
  Country: None (occurrence: None)
  Receive Date: 20090519
  Receipt Date: 20090513
  Transmission Date: 20091009
  Serious: Yes (Other)
  Sender: FDA-Public Use
  Company Number: US-AMGEN-US344627

PATIENT
  Sex: Female
  Weight: 80.8 kg

DRUGS (20)
  1. NPLATE [Suspect]
     Indication: IDIOPATHIC THROMBOCYTOPENIC PURPURA
     Route: 058
     Dates: start: 20081202, end: 20090407
  2. NPLATE [Suspect]
     Route: 058
     Dates: start: 20081209, end: 20081209
  3. NPLATE [Suspect]
     Route: 058
     Dates: start: 20081216, end: 20081216
  4. NPLATE [Suspect]
     Route: 058
     Dates: start: 20081223, end: 20081223
  5. NPLATE [Suspect]
     Route: 058
     Dates: start: 20090106, end: 20090106
  6. NPLATE [Suspect]
     Route: 058
     Dates: start: 20090113, end: 20090113
  7. NPLATE [Suspect]
     Route: 058
     Dates: start: 20090303, end: 20090303
  8. NPLATE [Suspect]
     Route: 058
     Dates: start: 20090310, end: 20090310
  9. NPLATE [Suspect]
     Route: 058
     Dates: start: 20090317, end: 20090317
  10. NPLATE [Suspect]
     Route: 058
     Dates: start: 20090324, end: 20090407
  11. NPLATE [Suspect]
     Route: 058
     Dates: start: 20081230, end: 20081230
  12. LEVAQUIN [Concomitant]
     Route: 048
     Dates: start: 20080611
  13. AMOXIL [Concomitant]
     Route: 048
     Dates: start: 20080611
  14. DANOCRINE [Concomitant]
     Route: 048
     Dates: start: 20080501
  15. LOVAZA [Concomitant]
     Route: 048
     Dates: start: 20080306
  16. PYCNOGENOL [Concomitant]
     Dates: start: 20080306
  17. VITAMIN C AND E [Concomitant]
     Route: 048
     Dates: start: 20081206
  18. VITAMIN A [Concomitant]
     Route: 048
     Dates: start: 20081206
  19. LANTUS [Concomitant]
  20. GLUCOPHAGE [Concomitant]

REACTIONS (3)
  - CONTUSION [None]
  - FATIGUE [None]
  - THERAPEUTIC RESPONSE DECREASED [None]
